FAERS Safety Report 24148617 (Version 1)
Quarter: 2024Q3

REPORT INFORMATION
  Report Type: Spontaneous
  Country: US (occurrence: US)
  Receive Date: 20240729
  Receipt Date: 20240729
  Transmission Date: 20241017
  Serious: Yes (Hospitalization, Other)
  Sender: MALLINCKRODT
  Company Number: US-MALLINCKRODT-MNK202404673

PATIENT
  Sex: Male

DRUGS (17)
  1. CORTICOTROPIN [Suspect]
     Active Substance: CORTICOTROPIN
     Indication: Multiple sclerosis
     Route: 030
  2. ACETAMINOPHEN [Concomitant]
     Active Substance: ACETAMINOPHEN
     Dosage: UNKNOWN
  3. AMPYRA [Concomitant]
     Active Substance: DALFAMPRIDINE
     Dosage: UNKNOWN
  4. APPLE CIDER [Concomitant]
     Dosage: UNKNOWN
  5. HERBALS\WITHANIA SOMNIFERA ROOT [Concomitant]
     Active Substance: HERBALS\WITHANIA SOMNIFERA ROOT
     Dosage: UNKNOWN
  6. ATORVASTATIN [Concomitant]
     Active Substance: ATORVASTATIN
     Dosage: UNKNOWN
  7. BACLOFEN [Concomitant]
     Active Substance: BACLOFEN
     Dosage: UNKNOWN
  8. DICLOFENAC [Concomitant]
     Active Substance: DICLOFENAC
     Dosage: UNKNOWN
  9. MAGNESIUM [Concomitant]
     Active Substance: MAGNESIUM
     Dosage: UNKNOWN
  10. VITAMINS [Concomitant]
     Active Substance: VITAMINS
     Dosage: UNKNOWN
  11. NUVIGIL [Concomitant]
     Active Substance: ARMODAFINIL
     Dosage: UNKNOWN
  12. NUVIGIL [Concomitant]
     Active Substance: ARMODAFINIL
     Dosage: UNKNOWN
  13. TESTOSTERONE [Concomitant]
     Active Substance: TESTOSTERONE
     Dosage: UNKNOWN
  14. VIAGRA [Concomitant]
     Active Substance: SILDENAFIL CITRATE
     Dosage: UNKNOWN
  15. VITAMIN B12 [Concomitant]
     Active Substance: CYANOCOBALAMIN
     Dosage: UNKNOWN
  16. VITAMIN D [Concomitant]
     Active Substance: VITAMIN D NOS
     Dosage: UNKNOWN
  17. ZYRTEC [Concomitant]
     Active Substance: CETIRIZINE HYDROCHLORIDE
     Dosage: UNKNOWN

REACTIONS (3)
  - Fall [Unknown]
  - Blindness [Not Recovered/Not Resolved]
  - Influenza [Not Recovered/Not Resolved]
